FAERS Safety Report 18741527 (Version 1)
Quarter: 2021Q1

REPORT INFORMATION
  Report Type: Spontaneous
  Country: US (occurrence: US)
  Receive Date: 20210114
  Receipt Date: 20210114
  Transmission Date: 20210419
  Serious: No
  Sender: FDA-Public Use
  Company Number: US-ABBVIE-20K-163-3466246-00

PATIENT
  Age: 63 Year
  Sex: Male

DRUGS (1)
  1. DUOPA [Suspect]
     Active Substance: CARBIDOPA\LEVODOPA
     Indication: PARKINSON^S DISEASE
     Route: 050
     Dates: start: 2015

REACTIONS (13)
  - Device occlusion [Recovered/Resolved]
  - Gait inability [Unknown]
  - Device occlusion [Recovered/Resolved]
  - Device kink [Unknown]
  - Device physical property issue [Unknown]
  - Pain [Unknown]
  - Device issue [Unknown]
  - Device occlusion [Recovered/Resolved]
  - Device occlusion [Recovered/Resolved]
  - Device occlusion [Unknown]
  - Device occlusion [Recovered/Resolved]
  - Device leakage [Unknown]
  - Device occlusion [Recovered/Resolved]

NARRATIVE: CASE EVENT DATE: 201608
